FAERS Safety Report 7982168-3 (Version None)
Quarter: 2011Q4

REPORT INFORMATION
  Report Type: 
  Country: None (occurrence: None)
  Receive Date: 20111215
  Receipt Date: 20111026
  Transmission Date: 20120403
  Serious: Yes (Other)
  Sender: FDA-Public Use
  Company Number: FR-ALLERGAN-1115940US

PATIENT
  Age: 65 Year
  Sex: Female

DRUGS (3)
  1. COMBIGAN [Suspect]
     Indication: GLAUCOMA
     Dosage: UNK
     Dates: start: 20111001
  2. LUMIGAN [Concomitant]
     Indication: GLAUCOMA
     Dosage: UNK
  3. TRUSOPT [Concomitant]
     Indication: GLAUCOMA
     Dosage: UNK

REACTIONS (7)
  - FATIGUE [None]
  - EYE IRRITATION [None]
  - SUICIDAL IDEATION [None]
  - MYASTHENIC SYNDROME [None]
  - DEPRESSION [None]
  - BLOOD PRESSURE DECREASED [None]
  - VISUAL ACUITY REDUCED [None]
